FAERS Safety Report 4999635-7 (Version None)
Quarter: 2006Q2

REPORT INFORMATION
  Report Type: 
  Country: None (occurrence: None)
  Receive Date: 20060511
  Receipt Date: 20060505
  Transmission Date: 20061013
  Serious: Yes (Hospitalization)
  Sender: FDA-Public Use
  Company Number: CH-MERCK-0605CHE00003

PATIENT
  Age: 24 Year
  Sex: Female

DRUGS (1)
  1. NOROXIN [Suspect]
     Indication: CYSTITIS
     Route: 048
     Dates: start: 20060404, end: 20060404

REACTIONS (3)
  - ANGIONEUROTIC OEDEMA [None]
  - FLUSHING [None]
  - TYPE II HYPERSENSITIVITY [None]
